FAERS Safety Report 8297671-9 (Version None)
Quarter: 2012Q2

REPORT INFORMATION
  Report Type: 
  Country: None (occurrence: None)
  Receive Date: 20120419
  Receipt Date: 20120411
  Transmission Date: 20120825
  Serious: Yes (Other)
  Sender: FDA-Public Use
  Company Number: US-JNJFOC-20120405600

PATIENT
  Sex: Male
  Weight: 81.65 kg

DRUGS (8)
  1. XARELTO [Suspect]
     Indication: ATRIAL FIBRILLATION
     Route: 048
     Dates: start: 20120301
  2. TERAZOSIN HCL [Concomitant]
     Indication: BLOOD PRESSURE
     Route: 048
  3. XARELTO [Suspect]
     Indication: THROMBOSIS PROPHYLAXIS
     Route: 048
     Dates: start: 20120301
  4. AMLODIPINE [Concomitant]
     Route: 048
  5. LEXAPRO [Concomitant]
     Indication: PAIN
  6. LISINOPRIL [Concomitant]
     Indication: BLOOD PRESSURE
     Route: 048
  7. ASPIRIN [Concomitant]
  8. MULTIPLE VITAMIN [Concomitant]
     Indication: VITAMIN SUPPLEMENTATION
     Route: 048

REACTIONS (2)
  - CONFUSIONAL STATE [None]
  - HYPERSOMNIA [None]
